FAERS Safety Report 8880735 (Version 3)
Quarter: 2015Q2

REPORT INFORMATION
  Report Type: Spontaneous
  Country: US (occurrence: US)
  Receive Date: 20121101
  Receipt Date: 20150601
  Transmission Date: 20150821
  Serious: Yes (Death, Hospitalization, Other)
  Sender: FDA-Public Use
  Company Number: US-GLAXOSMITHKLINE-A0999467A

PATIENT
  Age: 64 Year
  Sex: Male
  Weight: 104.5 kg

DRUGS (10)
  1. PREDNISONE. [Concomitant]
     Active Substance: PREDNISONE
  2. VOTRIENT [Suspect]
     Active Substance: PAZOPANIB HYDROCHLORIDE
     Indication: PRODUCT USED FOR UNKNOWN INDICATION
     Dosage: 200 MG, BID
     Route: 048
  3. LEXAPRO [Concomitant]
     Active Substance: ESCITALOPRAM OXALATE
  4. ALBUTEROL. [Concomitant]
     Active Substance: ALBUTEROL
  5. FLUDROCORTISONE [Concomitant]
     Active Substance: FLUDROCORTISONE
  6. NORVASC [Concomitant]
     Active Substance: AMLODIPINE BESYLATE
  7. ALLOPURINOL. [Concomitant]
     Active Substance: ALLOPURINOL
  8. LYRICA [Concomitant]
     Active Substance: PREGABALIN
  9. DIAZEPAM. [Concomitant]
     Active Substance: DIAZEPAM
  10. LISINOPRIL. [Concomitant]
     Active Substance: LISINOPRIL

REACTIONS (5)
  - Cerebrovascular accident [Unknown]
  - Death [Fatal]
  - Weight decreased [Unknown]
  - Pneumonia [Unknown]
  - Dysphagia [Unknown]

NARRATIVE: CASE EVENT DATE: 20121018
